FAERS Safety Report 13926558 (Version 1)
Quarter: 2017Q3

REPORT INFORMATION
  Report Type: Spontaneous
  Country: US (occurrence: None)
  Receive Date: 20170831
  Receipt Date: 20170831
  Transmission Date: 20171127
  Serious: Yes (Death, Hospitalization)
  Sender: FDA-Public Use
  Company Number: None

PATIENT
  Age: 3 Year
  Sex: Male
  Weight: 18.1 kg

DRUGS (5)
  1. MITOXANTRONE HYDROCHLORIDE. [Suspect]
     Active Substance: MITOXANTRONE HYDROCHLORIDE
     Dates: end: 20160131
  2. ERWINIA ASPARGINASE [Suspect]
     Active Substance: ASPARAGINASE ERWINIA CHRYSANTHEMI
     Dates: end: 20160212
  3. METHOTREXATE. [Suspect]
     Active Substance: METHOTREXATE
     Dates: end: 20160208
  4. DEXAMETHASONE. [Suspect]
     Active Substance: DEXAMETHASONE
     Dates: end: 20160203
  5. VINCRISTINE SULFATE. [Suspect]
     Active Substance: VINCRISTINE SULFATE
     Dates: end: 20160212

REACTIONS (13)
  - Seizure [None]
  - Hypotension [None]
  - Sepsis [None]
  - Acute lymphocytic leukaemia recurrent [None]
  - Confusional state [None]
  - General physical health deterioration [None]
  - Appendicitis [None]
  - Dyspnoea [None]
  - Encephalopathy [None]
  - Viral infection [None]
  - Lethargy [None]
  - Abdominal pain [None]
  - Pseudomonas test positive [None]

NARRATIVE: CASE EVENT DATE: 20160211
